FAERS Safety Report 9838639 (Version 1)
Quarter: 2013Q4

REPORT INFORMATION
  Report Type: Spontaneous
  Country: US (occurrence: None)
  Receive Date: 20131205
  Receipt Date: 20131205
  Transmission Date: 20140711
  Serious: Yes (Hospitalization)
  Sender: FDA-Public Use
  Company Number: 163-POMAL-13110840

PATIENT
  Sex: Female

DRUGS (16)
  1. POMALYST (POMALIDOMIDE) (2 MILLIGRAM, CAPSULES) [Suspect]
     Indication: PLASMA CELL MYELOMA
     Dosage: 21 IN 28 D
     Route: 048
     Dates: start: 20130716
  2. AGGRENOX [Concomitant]
  3. LISINOPRIL/HCTZ [Concomitant]
  4. VITAMIN B12 [Concomitant]
  5. VITAMIN D [Concomitant]
  6. ASPIRINE [Concomitant]
  7. GABAPENTIN [Concomitant]
  8. COUMADIN [Concomitant]
  9. METFORMIN [Concomitant]
  10. ACYCLOVIR [Concomitant]
  11. SYNTHROID [Concomitant]
  12. POTASSIUM [Concomitant]
  13. CELEBREX [Concomitant]
  14. FISH OIL [Concomitant]
  15. COLACE [Concomitant]
  16. CALCIUM [Concomitant]

REACTIONS (1)
  - Upper respiratory tract infection [None]
